FAERS Safety Report 7812227-7 (Version None)
Quarter: 2011Q4

REPORT INFORMATION
  Report Type: 
  Country: None (occurrence: None)
  Receive Date: 20111013
  Receipt Date: 20110921
  Transmission Date: 20120403
  Serious: No
  Sender: FDA-Public Use
  Company Number: US-NOVEN-11US003276

PATIENT
  Sex: Female

DRUGS (2)
  1. FENTANYL [Suspect]
     Indication: PAIN
  2. FENTANYL [Suspect]
     Indication: NEOPLASM MALIGNANT
     Dosage: 25 UG/HR Q48HRS
     Route: 062
     Dates: start: 20040101

REACTIONS (1)
  - INADEQUATE ANALGESIA [None]
